FAERS Safety Report 6819661-2 (Version None)
Quarter: 2010Q3

REPORT INFORMATION
  Report Type: 
  Country: None (occurrence: None)
  Receive Date: 20100707
  Receipt Date: 20100628
  Transmission Date: 20110219
  Serious: Yes (Hospitalization)
  Sender: FDA-Public Use
  Company Number: JP-JNJFOC-20100604939

PATIENT
  Sex: Female
  Weight: 50 kg

DRUGS (10)
  1. REMICADE [Suspect]
     Indication: RHEUMATOID ARTHRITIS
     Dosage: 4 INFUSIONS ON UNSPECIFIED DATES
     Route: 042
  2. AMLODIN OD [Concomitant]
     Indication: HYPERTENSION
     Route: 048
  3. AZULFIDINE [Concomitant]
     Indication: RHEUMATOID ARTHRITIS
     Route: 048
  4. CRESTOR [Concomitant]
     Indication: HYPERLIPIDAEMIA
     Route: 048
  5. CELECOX [Concomitant]
     Indication: RHEUMATOID ARTHRITIS
     Route: 048
  6. METOLATE [Concomitant]
     Indication: RHEUMATOID ARTHRITIS
     Route: 048
  7. FOLIAMIN [Concomitant]
     Indication: VITAMIN SUPPLEMENTATION
     Route: 048
  8. FOSAMAC [Concomitant]
     Indication: OSTEOPOROSIS
     Route: 048
  9. OMEPRAL [Concomitant]
     Indication: PROPHYLAXIS AGAINST GASTROINTESTINAL ULCER
     Route: 048
  10. BLOPRESS [Concomitant]
     Indication: HYPERTENSION
     Route: 048

REACTIONS (1)
  - GLOMERULONEPHRITIS RAPIDLY PROGRESSIVE [None]
